FAERS Safety Report 7332980-9 (Version None)
Quarter: 2011Q1

REPORT INFORMATION
  Report Type: 
  Country: None (occurrence: None)
  Receive Date: 20110304
  Receipt Date: 20110228
  Transmission Date: 20110831
  Serious: Yes (Life-Threatening, Hospitalization, Other)
  Sender: FDA-Public Use
  Company Number: BR-TYCO HEALTHCARE/MALLINCKRODT-T201100532

PATIENT
  Age: 69 Year
  Sex: Female

DRUGS (1)
  1. CONRAY [Suspect]
     Indication: COMPUTERISED TOMOGRAM
     Dosage: 100 ML, SINGLE
     Route: 042
     Dates: start: 20110222, end: 20110222

REACTIONS (3)
  - CARDIO-RESPIRATORY ARREST [None]
  - RIB FRACTURE [None]
  - DYSPNOEA [None]
